FAERS Safety Report 4424186-8 (Version None)
Quarter: 2004Q3

REPORT INFORMATION
  Report Type: 
  Country: None (occurrence: None)
  Receive Date: 20040810
  Receipt Date: 20040810
  Transmission Date: 20050211
  Serious: No
  Sender: FDA-Public Use
  Company Number: None

PATIENT
  Age: 34 Year
  Sex: Female

DRUGS (2)
  1. LACTATED RINGERS DL [Suspect]
     Dosage: IV
     Route: 042
     Dates: start: 20040728
  2. CEFAZOLIN [Suspect]

REACTIONS (3)
  - EAR DISORDER [None]
  - PRURITUS [None]
  - THROAT IRRITATION [None]
